FAERS Safety Report 10645877 (Version 1)
Quarter: 2014Q4

REPORT INFORMATION
  Report Type: Spontaneous
  Country: US (occurrence: None)
  Receive Date: 20141203
  Receipt Date: 20141203
  Transmission Date: 20150529
  Serious: Yes (Other)
  Sender: FDA-Public Use
  Company Number: 1405USA008059

PATIENT
  Age: 9 Year
  Sex: Female
  Weight: 29 kg

DRUGS (2)
  1. ATARAX [Concomitant]
     Active Substance: HYDROXYZINE\HYDROXYZINE HYDROCHLORIDE
  2. GRASTEK [Suspect]
     Active Substance: PHLEUM PRATENSE POLLEN
     Indication: SEASONAL ALLERGY
     Route: 060
     Dates: start: 20140429, end: 20140429

REACTIONS (4)
  - Cough [None]
  - Hypersensitivity [None]
  - Throat tightness [None]
  - Pharyngeal oedema [None]

NARRATIVE: CASE EVENT DATE: 20140429
